FAERS Safety Report 19886813 (Version 1)
Quarter: 2021Q3

REPORT INFORMATION
  Report Type: Other
  Country: FR (occurrence: FR)
  Receive Date: 20210928
  Receipt Date: 20210928
  Transmission Date: 20211014
  Serious: Yes (Death)
  Sender: FDA-Public Use
  Company Number: FR-INNOGENIX, LLC-2118880

PATIENT
  Age: 24 Year
  Sex: Female

DRUGS (7)
  1. LOXAPINE. [Suspect]
     Active Substance: LOXAPINE
     Route: 065
  2. LORMETAZEPAM [Concomitant]
     Active Substance: LORMETAZEPAM
     Route: 065
  3. TROPATEPINE [Concomitant]
     Active Substance: TROPATEPINE
     Route: 065
  4. PROPRANOLOL HYDROCHLORIDE. [Suspect]
     Active Substance: PROPRANOLOL HYDROCHLORIDE
     Indication: TACHYCARDIA
     Route: 065
  5. RISPERIDONE. [Concomitant]
     Active Substance: RISPERIDONE
     Route: 065
  6. PALIPERIDONE. [Suspect]
     Active Substance: PALIPERIDONE
     Route: 065
  7. DIAZEPAM. [Suspect]
     Active Substance: DIAZEPAM
     Route: 065

REACTIONS (3)
  - Fall [Fatal]
  - Depressed level of consciousness [Fatal]
  - Orthostatic hypotension [Fatal]
